FAERS Safety Report 8573694-7 (Version None)
Quarter: 2012Q3

REPORT INFORMATION
  Report Type: 
  Country: None (occurrence: None)
  Receive Date: 20120806
  Receipt Date: 20120731
  Transmission Date: 20120928
  Serious: Yes (Other)
  Sender: FDA-Public Use
  Company Number: US-GLAXOSMITHKLINE-A0978418A

PATIENT
  Age: 36 Year
  Sex: Male

DRUGS (4)
  1. VENTOLIN [Suspect]
     Indication: ASTHMA
     Dosage: 2PUFF AS REQUIRED
     Route: 055
     Dates: start: 20080101
  2. ALLEGRA [Concomitant]
  3. LORATADINE [Concomitant]
  4. FLOVENT [Concomitant]
     Route: 055

REACTIONS (7)
  - DRUG INEFFECTIVE [None]
  - ASTHMA [None]
  - DYSPNOEA [None]
  - PRODUCTIVE COUGH [None]
  - PRODUCT QUALITY ISSUE [None]
  - HAEMOPTYSIS [None]
  - DRUG ADMINISTRATION ERROR [None]
